FAERS Safety Report 22283566 (Version 1)
Quarter: 2023Q2

REPORT INFORMATION
  Report Type: Spontaneous
  Country: US (occurrence: None)
  Receive Date: 20230503
  Receipt Date: 20230503
  Transmission Date: 20230721
  Serious: Yes (Other)
  Sender: FDA-Public Use
  Company Number: None

PATIENT
  Age: 72 Year
  Sex: Female
  Weight: 64.8 kg

DRUGS (1)
  1. LOSARTAN [Suspect]
     Active Substance: LOSARTAN
     Indication: Hypertension
     Dosage: FREQUENCY : DAILY;?
     Route: 048
     Dates: start: 20230501, end: 20230503

REACTIONS (4)
  - Blood pressure inadequately controlled [None]
  - Blood pressure diastolic increased [None]
  - Blood pressure systolic increased [None]
  - Product substitution issue [None]

NARRATIVE: CASE EVENT DATE: 20230501
